FAERS Safety Report 22606989 (Version 1)
Quarter: 2023Q2

REPORT INFORMATION
  Report Type: Spontaneous
  Country: GB (occurrence: GB)
  Receive Date: 20230615
  Receipt Date: 20230615
  Transmission Date: 20230721
  Serious: Yes (Other)
  Sender: FDA-Public Use
  Company Number: GB-ANIPHARMA-2023-UK-000195

PATIENT
  Age: 72 Year
  Sex: Male

DRUGS (11)
  1. CANDESARTAN [Suspect]
     Active Substance: CANDESARTAN
     Indication: Product used for unknown indication
     Dosage: 8 MG UNK
     Route: 065
  2. NICOTINE [Concomitant]
     Active Substance: NICOTINE
     Dosage: 15 MG UNK
     Route: 055
  3. OMEPRAZOLE [Concomitant]
     Active Substance: OMEPRAZOLE
     Dosage: 20 MG UNK
     Route: 065
  4. BISOPROLOL [Suspect]
     Active Substance: BISOPROLOL
     Dosage: 5 MG UNK
     Route: 065
  5. ATORVASTATIN [Concomitant]
     Active Substance: ATORVASTATIN
     Dosage: 80 MG UNK
     Route: 065
  6. DORZOLAMIDE [Concomitant]
     Active Substance: DORZOLAMIDE
     Dosage: 20MG/ML
     Route: 065
  7. EDOXABAN [Concomitant]
     Active Substance: EDOXABAN
     Dosage: 60
     Route: 065
  8. IVABRADINE [Suspect]
     Active Substance: IVABRADINE
     Dosage: 7.5 MG UNK
     Route: 065
  9. NITROGLYCERIN [Concomitant]
     Active Substance: NITROGLYCERIN
     Dosage: 400MICROGRAMS/DOSE
     Route: 050
  10. INCRUSE ELLIPTA [Concomitant]
     Active Substance: UMECLIDINIUM BROMIDE
     Dosage: 55MICROGRAMS/DOSE
     Route: 055
  11. LATANOPROST [Concomitant]
     Active Substance: LATANOPROST
     Dosage: 50MICROGRAMS/ML EYE DROPS DRUG REMAPPED
     Route: 065

REACTIONS (2)
  - Syncope [Recovered/Resolved]
  - Dizziness [Recovered/Resolved]
